FAERS Safety Report 23418528 (Version 1)
Quarter: 2024Q1

REPORT INFORMATION
  Report Type: Spontaneous
  Country: US (occurrence: US)
  Receive Date: 20240118
  Receipt Date: 20240118
  Transmission Date: 20240410
  Serious: No
  Sender: FDA-Public Use
  Company Number: US-002147023-NVSC2023US261569

PATIENT
  Sex: Female

DRUGS (10)
  1. CLINDAMYCIN [Suspect]
     Active Substance: CLINDAMYCIN
     Indication: Eczema
     Dosage: 1 APPLICATION ONCE DAILY (EVERY MORNING), FOR 60 DAYS
     Route: 061
  2. COSENTYX [Suspect]
     Active Substance: SECUKINUMAB
     Indication: Hidradenitis
     Dosage: UNK UNK, QW (FOR 5 WEEKS, THEN ONCE MONTHLY)
     Route: 058
  3. FLUOCINONIDE [Suspect]
     Active Substance: FLUOCINONIDE
     Indication: Dermatitis atopic
     Dosage: UNK UNK, QHS
     Route: 061
  4. PREDNISONE [Suspect]
     Active Substance: PREDNISONE
     Indication: Dermatitis atopic
     Dosage: 1 DOSAGE FORM, QD (FOR 16 DAYS) (TAKE WITH FOOD)
     Route: 048
  5. PREDNISONE [Suspect]
     Active Substance: PREDNISONE
     Dosage: 1 TABLETS X 4 DAYS (TAKE WITH FOOD)
     Route: 048
  6. PREDNISONE [Suspect]
     Active Substance: PREDNISONE
     Dosage: 2 TABLETS X 4 DAYS (TAKE WITH FOOD)
     Route: 048
  7. PREDNISONE [Suspect]
     Active Substance: PREDNISONE
     Dosage: 3 TABLETS X 4 DAYS (TAKE WITH FOOD)
     Route: 048
  8. PREDNISONE [Suspect]
     Active Substance: PREDNISONE
     Indication: Eczema
     Dosage: 4 TABLETS X 4 DAYS (TAKE WITH FOOD)
     Route: 048
  9. TACROLIMUS [Suspect]
     Active Substance: TACROLIMUS
     Indication: Dermatitis atopic
     Dosage: 1 APPLICATION, BID FOR 30 DAYS
     Route: 061
  10. TRIAMCINOLONE ACETONIDE [Suspect]
     Active Substance: TRIAMCINOLONE ACETONIDE
     Indication: Eczema
     Dosage: 1 APPLICATION, BID (30 DAYS)
     Route: 061

REACTIONS (12)
  - Red blood cell count decreased [Unknown]
  - Eczema [Unknown]
  - Acne [Unknown]
  - Therapeutic product effect incomplete [Unknown]
  - Mean cell haemoglobin increased [Unknown]
  - Hidradenitis [Unknown]
  - Skin plaque [Unknown]
  - Rash erythematous [Unknown]
  - Nodule [Unknown]
  - Furuncle [Unknown]
  - Fistula [Unknown]
  - Dermatitis atopic [Unknown]
